FAERS Safety Report 13502788 (Version 2)
Quarter: 2017Q2

REPORT INFORMATION
  Report Type: Spontaneous
  Country: US (occurrence: US)
  Receive Date: 20170502
  Receipt Date: 20170522
  Transmission Date: 20170830
  Serious: Yes (Other)
  Sender: FDA-Public Use
  Company Number: US-009507513-1704USA014343

PATIENT
  Age: 77 Year
  Sex: Female
  Weight: 63 kg

DRUGS (8)
  1. CALCIUM (UNSPECIFIED) [Concomitant]
     Active Substance: CALCIUM
  2. BELSOMRA [Suspect]
     Active Substance: SUVOREXANT
     Indication: INSOMNIA
     Dosage: 10 MG, QPM
     Route: 048
     Dates: start: 20170323
  3. EUROMEDICA CURAPHEN [Concomitant]
  4. CYANOCOBALAMIN. [Concomitant]
     Active Substance: CYANOCOBALAMIN
  5. LUMIGAN [Concomitant]
     Active Substance: BIMATOPROST
  6. METOPROLOL. [Concomitant]
     Active Substance: METOPROLOL
  7. MAGNESIUM (UNSPECIFIED) [Concomitant]
     Active Substance: MAGNESIUM
  8. CHOLECALCIFEROL [Concomitant]
     Active Substance: CHOLECALCIFEROL

REACTIONS (11)
  - Feeling abnormal [Recovered/Resolved]
  - Hallucination [Recovered/Resolved]
  - Restlessness [Recovered/Resolved]
  - Feeling jittery [Recovered/Resolved]
  - Cerebral disorder [Recovered/Resolved]
  - Self-injurious ideation [Recovered/Resolved]
  - Agitation [Recovered/Resolved]
  - Fear [Recovered/Resolved]
  - Tachyphrenia [Recovered/Resolved]
  - Drug ineffective [Recovered/Resolved]
  - Adverse event [Recovered/Resolved]

NARRATIVE: CASE EVENT DATE: 20170323
